FAERS Safety Report 24033453 (Version 1)
Quarter: 2024Q3

REPORT INFORMATION
  Report Type: Spontaneous
  Country: US (occurrence: US)
  Receive Date: 20240701
  Receipt Date: 20240701
  Transmission Date: 20241017
  Serious: No
  Sender: UCB
  Company Number: US-UCBSA-2024003034

PATIENT
  Age: 49 Year
  Sex: Female

DRUGS (7)
  1. MIDAZOLAM [Suspect]
     Active Substance: MIDAZOLAM
     Indication: Sedation
     Dosage: 1 MILLIGRAM
  2. MIDAZOLAM [Suspect]
     Active Substance: MIDAZOLAM
     Indication: Off label use
  3. DEXMEDETOMIDINE [Concomitant]
     Active Substance: DEXMEDETOMIDINE
     Indication: Sedation
     Dosage: 80 MICROGRAM, WAS TITRATED OVER 10 MINUTES FOR INDUCTION
  4. DEXMEDETOMIDINE [Concomitant]
     Active Substance: DEXMEDETOMIDINE
     Dosage: 1.5 MICROGRAM PER KILOGRAM PER HOUR
  5. PREDNISOLONE [Concomitant]
     Active Substance: PREDNISOLONE
     Indication: Swelling face
     Dosage: UNK
  6. PREDNISOLONE [Concomitant]
     Active Substance: PREDNISOLONE
     Indication: Swelling
  7. PREDNISOLONE [Concomitant]
     Active Substance: PREDNISOLONE
     Indication: Breast swelling

REACTIONS (1)
  - No adverse event [Unknown]
